FAERS Safety Report 16068208 (Version 2)
Quarter: 2019Q1

REPORT INFORMATION
  Report Type: Spontaneous
  Country: US (occurrence: US)
  Receive Date: 20190313
  Receipt Date: 20190318
  Transmission Date: 20190418
  Serious: Yes (Other)
  Sender: FDA-Public Use
  Company Number: US-PFIZER INC-2019105448

PATIENT
  Age: 71 Year
  Sex: Female
  Weight: 122.4 kg

DRUGS (5)
  1. DOFETILIDE. [Suspect]
     Active Substance: DOFETILIDE
     Indication: HEART RATE IRREGULAR
     Dosage: 125 MG, 2X/DAY (EVERY 12 HOURS)
     Route: 048
     Dates: start: 20190206
  2. CITALOPRAM [Concomitant]
     Active Substance: CITALOPRAM HYDROBROMIDE
     Dosage: UNK
     Dates: start: 2003
  3. MAGNESIUM [Concomitant]
     Active Substance: MAGNESIUM
     Dosage: 400 MG, 1X/DAY (1 TABLET BY MOUTH DAILY IN THE MORNING)
     Route: 048
  4. CALCIUM PLUS VITAMIN D3 [Concomitant]
     Indication: BLOOD CALCIUM ABNORMAL
     Dosage: 1 DF, 2X/DAY (600MG/400, 1 BY MOUTH IN THE MORNING AND AT NIGHT)
     Route: 048
     Dates: start: 20190206
  5. CALCIUM PLUS VITAMIN D3 [Concomitant]
     Indication: BONE SCAN ABNORMAL

REACTIONS (2)
  - Cataract [Not Recovered/Not Resolved]
  - Tinnitus [Not Recovered/Not Resolved]
